FAERS Safety Report 14828772 (Version 1)
Quarter: 2018Q2

REPORT INFORMATION
  Report Type: Spontaneous
  Country: US (occurrence: US)
  Receive Date: 20180430
  Receipt Date: 20180430
  Transmission Date: 20180711
  Serious: No
  Sender: FDA-Public Use
  Company Number: US-JNJFOC-20180403498

PATIENT
  Sex: Male

DRUGS (4)
  1. XARELTO [Concomitant]
     Active Substance: RIVAROXABAN
     Indication: DEEP VEIN THROMBOSIS
     Route: 065
  2. TYLENOL [Suspect]
     Active Substance: ACETAMINOPHEN
     Route: 065
  3. XARELTO [Concomitant]
     Active Substance: RIVAROXABAN
     Indication: PULMONARY EMBOLISM
     Route: 065
  4. TYLENOL [Suspect]
     Active Substance: ACETAMINOPHEN
     Indication: CHEST PAIN
     Route: 065
     Dates: start: 2016

REACTIONS (3)
  - Retching [Unknown]
  - Product use in unapproved indication [Unknown]
  - Vomiting [Unknown]

NARRATIVE: CASE EVENT DATE: 2016
